FAERS Safety Report 9823961 (Version 2)
Quarter: 2014Q1

REPORT INFORMATION
  Report Type: Spontaneous
  Country: US (occurrence: US)
  Receive Date: 20140116
  Receipt Date: 20140116
  Transmission Date: 20141002
  Serious: No
  Sender: FDA-Public Use
  Company Number: US-GILEAD-2011-0037731

PATIENT
  Sex: Male

DRUGS (3)
  1. LETAIRIS [Suspect]
     Indication: PORTOPULMONARY HYPERTENSION
     Route: 048
     Dates: start: 20110318
  2. LETAIRIS [Suspect]
     Indication: RENAL TRANSPLANT
     Route: 048
     Dates: end: 20110318
  3. LETAIRIS [Suspect]
     Indication: LIVER TRANSPLANT
     Route: 048
     Dates: start: 20110114

REACTIONS (1)
  - Nasal congestion [Unknown]
